FAERS Safety Report 6231510-2 (Version None)
Quarter: 2009Q2

REPORT INFORMATION
  Report Type: 
  Country: None (occurrence: None)
  Receive Date: 20090616
  Receipt Date: 20090605
  Transmission Date: 20091009
  Serious: Yes (Hospitalization)
  Sender: FDA-Public Use
  Company Number: B0575145A

PATIENT
  Sex: Male

DRUGS (4)
  1. ARTIST [Suspect]
     Dosage: 7.5MG PER DAY
     Route: 048
     Dates: start: 20081016, end: 20090423
  2. FASTIC [Concomitant]
  3. BASEN [Concomitant]
  4. BLOPRESS [Concomitant]
     Dates: start: 20081016

REACTIONS (3)
  - BLOOD CREATINE PHOSPHOKINASE INCREASED [None]
  - MALAISE [None]
  - RHABDOMYOLYSIS [None]
